FAERS Safety Report 16646406 (Version 2)
Quarter: 2019Q3

REPORT INFORMATION
  Report Type: Spontaneous
  Country: US (occurrence: US)
  Receive Date: 20190730
  Receipt Date: 20190910
  Transmission Date: 20191004
  Serious: Yes (Other)
  Sender: FDA-Public Use
  Company Number: US-GLAXOSMITHKLINE-US2019AMR134323

PATIENT
  Age: 41 Year
  Sex: Male

DRUGS (1)
  1. LAMICTAL XR [Suspect]
     Active Substance: LAMOTRIGINE
     Indication: PRODUCT USED FOR UNKNOWN INDICATION
     Dosage: 200 MG, QD
     Route: 048
     Dates: start: 201707

REACTIONS (5)
  - Product dose omission [Unknown]
  - Malaise [Recovered/Resolved]
  - Ill-defined disorder [Unknown]
  - Bipolar disorder [Recovered/Resolved]
  - Product substitution issue [Unknown]

NARRATIVE: CASE EVENT DATE: 20190723
